FAERS Safety Report 24939870 (Version 7)
Quarter: 2025Q4

REPORT INFORMATION
  Report Type: Spontaneous
  Country: JP (occurrence: JP)
  Receive Date: 20250207
  Receipt Date: 20251106
  Transmission Date: 20260117
  Serious: Yes (Hospitalization)
  Sender: ASTELLAS
  Company Number: JP-ASTELLAS-2025-AER-006244

PATIENT
  Age: 66 Year
  Sex: Male
  Weight: 90 kg

DRUGS (15)
  1. PADCEV [Suspect]
     Active Substance: ENFORTUMAB VEDOTIN-EJFV
     Indication: Metastatic carcinoma of the bladder
     Route: 042
     Dates: start: 20250115, end: 20250115
  2. PADCEV [Suspect]
     Active Substance: ENFORTUMAB VEDOTIN-EJFV
     Route: 042
     Dates: start: 20250324, end: 20250324
  3. PADCEV [Suspect]
     Active Substance: ENFORTUMAB VEDOTIN-EJFV
     Route: 042
     Dates: start: 20250414
  4. KEYTRUDA [Concomitant]
     Active Substance: PEMBROLIZUMAB
     Indication: Metastatic carcinoma of the bladder
     Route: 042
     Dates: start: 20250115, end: 20250115
  5. KEYTRUDA [Concomitant]
     Active Substance: PEMBROLIZUMAB
     Route: 042
     Dates: start: 20250507
  6. FEXOFENADINE tablet 60mg [Concomitant]
     Indication: Skin disorder
     Dosage: AFTER BREAKFAST AND DINNER
     Route: 065
     Dates: start: 20250129, end: 20250130
  7. Strong Restamin Cortisone Kowa Ointment 10g [Concomitant]
     Indication: Skin disorder
     Dosage: 10G, 1 TUBE
     Route: 065
     Dates: start: 20250129
  8. PREDONINE [Concomitant]
     Active Substance: PREDNISOLONE
     Indication: Skin disorder
     Dosage: AFTER LUNCH AND DINNER
     Route: 048
     Dates: start: 20250130
  9. PREDONINE [Concomitant]
     Active Substance: PREDNISOLONE
     Dosage: AFTER BREAKFAST AND LUNCH
     Route: 048
     Dates: start: 20250131
  10. PREDONINE [Concomitant]
     Active Substance: PREDNISOLONE
     Dosage: AFTER EVERY MEAL
     Route: 048
     Dates: start: 20250201
  11. PREDONINE [Concomitant]
     Active Substance: PREDNISOLONE
     Dosage: AFTER EVERY MEAL?4:4:2?
     Route: 048
     Dates: start: 20250206, end: 20250210
  12. PREDONINE [Concomitant]
     Active Substance: PREDNISOLONE
     Dosage: AFTER BREAKFAST AND LUNCH
     Route: 048
     Dates: start: 20250211, end: 20250215
  13. PREDONINE [Concomitant]
     Active Substance: PREDNISOLONE
     Dosage: AFTER BREAKFAST AND LUNCH (4:2)
     Route: 048
     Dates: start: 20250216, end: 20250220
  14. PREDONINE [Concomitant]
     Active Substance: PREDNISOLONE
     Dosage: AFTER BREAKFAST, IT WAS TAPERED TO ZERO THEREAFTER
     Route: 048
     Dates: start: 20250221
  15. Dermovate ointment 0.05% [Concomitant]
     Indication: Skin disorder
     Dosage: 5G X 10 TUBE
     Route: 065
     Dates: start: 20250131, end: 20250303

REACTIONS (2)
  - Skin disorder [Recovered/Resolved]
  - Liver disorder [Recovered/Resolved]

NARRATIVE: CASE EVENT DATE: 20250122
